FAERS Safety Report 12674199 (Version 4)
Quarter: 2016Q3

REPORT INFORMATION
  Report Type: Spontaneous
  Country: US (occurrence: US)
  Receive Date: 20160822
  Receipt Date: 20160930
  Transmission Date: 20161109
  Serious: No
  Sender: FDA-Public Use
  Company Number: US-GLAXOSMITHKLINE-US2016GSK116611

PATIENT
  Sex: Female
  Weight: 56.69 kg

DRUGS (5)
  1. SUMATRIPTAN (SUMATRIPTAN SUCCINATE) NASAL SPRAY [Suspect]
     Active Substance: SUMATRIPTAN SUCCINATE
     Indication: MIGRAINE
     Dosage: 6 MG, UNK
     Dates: start: 2015, end: 2015
  2. IMITREX [Suspect]
     Active Substance: SUMATRIPTAN SUCCINATE
     Indication: MIGRAINE
     Route: 048
  3. IMITREX [Suspect]
     Active Substance: SUMATRIPTAN SUCCINATE
     Indication: MIGRAINE
  4. PROGESTERONE. [Concomitant]
     Active Substance: PROGESTERONE
     Indication: PROGESTERONE DECREASED
     Dosage: 200 MG, QD
     Route: 048
     Dates: start: 2016
  5. ESTRADIOL. [Concomitant]
     Active Substance: ESTRADIOL
     Dosage: 2 MG, QD
     Route: 048
     Dates: start: 2010

REACTIONS (7)
  - Product quality issue [Unknown]
  - Progesterone decreased [Unknown]
  - Drug ineffective [Recovered/Resolved]
  - Therapeutic response decreased [Unknown]
  - Drug dose omission [Unknown]
  - Drug intolerance [Unknown]
  - Nausea [Unknown]
